FAERS Safety Report 7674235-9 (Version None)
Quarter: 2011Q3

REPORT INFORMATION
  Report Type: 
  Country: None (occurrence: None)
  Receive Date: 20110810
  Receipt Date: 20110801
  Transmission Date: 20111222
  Serious: Yes (Hospitalization)
  Sender: FDA-Public Use
  Company Number: US-ELI_LILLY_AND_COMPANY-US200801004168

PATIENT
  Sex: Male
  Weight: 108.84 kg

DRUGS (16)
  1. LOPRESSOR [Concomitant]
     Dosage: UNK, UNKNOWN
  2. HYDROCHLOROTHIAZIDE [Concomitant]
     Dosage: 25 MG, DAILY (1/D)
     Dates: end: 20071001
  3. METOPROLOL TARTRATE [Concomitant]
     Dosage: UNK
     Dates: start: 20060101
  4. NOVOLOG [Concomitant]
     Dosage: UNK, AS NEEDED
  5. HYDROCHLOROTHIAZIDE [Concomitant]
     Indication: BLOOD PRESSURE
     Dosage: UNK
     Dates: start: 20060101
  6. ACTOS [Concomitant]
     Dosage: 30 MG, QD
  7. LIPITOR [Concomitant]
     Indication: BLOOD CHOLESTEROL INCREASED
     Dosage: UNK
     Dates: start: 20000101
  8. AMLODIPINE [Concomitant]
     Indication: HYPERTENSION
  9. LISINOPRIL [Concomitant]
     Dosage: 20 MG, DAILY (1/D)
     Dates: end: 20071001
  10. ASPIRIN [Concomitant]
     Dosage: 81 MG, UNKNOWN
  11. ZOLOFT [Concomitant]
     Dosage: UNK, UNKNOWN
  12. ANALGESICS [Concomitant]
     Indication: PANCREATITIS
     Dosage: UNK, UNKNOWN
     Dates: start: 20071001
  13. DIOVAN [Concomitant]
     Indication: BLOOD PRESSURE
     Dosage: UNK
  14. BYETTA [Suspect]
     Indication: TYPE 2 DIABETES MELLITUS
     Dosage: 10 UG, 2/D
     Route: 058
     Dates: start: 20070601, end: 20071008
  15. METFORMIN HCL [Concomitant]
     Dosage: 1000 MG, 2/D
  16. LANTUS [Concomitant]
     Dosage: 30 U, 2/D

REACTIONS (3)
  - PANCREATITIS ACUTE [None]
  - OFF LABEL USE [None]
  - RENAL DISORDER [None]
